FAERS Safety Report 10274469 (Version 1)
Quarter: 2014Q3

REPORT INFORMATION
  Report Type: Spontaneous
  Country: US (occurrence: US)
  Receive Date: 20140702
  Receipt Date: 20140702
  Transmission Date: 20150326
  Serious: No
  Sender: FDA-Public Use
  Company Number: US-PFIZER INC-2014180675

PATIENT
  Sex: Female

DRUGS (1)
  1. DIFLUCAN [Suspect]
     Active Substance: FLUCONAZOLE
     Dosage: UNK

REACTIONS (5)
  - Pharyngeal erythema [Unknown]
  - Pruritus [Unknown]
  - Thyroid disorder [Unknown]
  - Flushing [Unknown]
  - Erythema [Unknown]
